FAERS Safety Report 8662789 (Version 3)
Quarter: 2012Q4

REPORT INFORMATION
  Report Type: Report from Study
  Country: US (occurrence: US)
  Receive Date: 20120712
  Receipt Date: 20121018
  Transmission Date: 20130627
  Serious: Yes (Hospitalization, Other)
  Sender: FDA-Public Use
  Company Number: US-ABBOTT-12P-163-0953414-00

PATIENT
  Age: 69 Year
  Sex: Female

DRUGS (10)
  1. HUMIRA 40 MG/0.8 ML PEN [Suspect]
     Indication: CROHN^S DISEASE
     Dates: start: 20081128, end: 201107
  2. HUMIRA 40 MG/0.8 ML PEN [Suspect]
     Dates: start: 201203
  3. DILAUDID [Suspect]
     Indication: PRODUCT USED FOR UNKNOWN INDICATION
  4. GLUCOTROL XL [Concomitant]
     Indication: PRODUCT USED FOR UNKNOWN INDICATION
     Dosage: 5 mg daily
     Dates: end: 201201
  5. LANTUS [Concomitant]
     Indication: DIABETES MELLITUS
     Dosage: Every morning
     Dates: start: 201201
  6. NORVASC [Concomitant]
     Indication: PRODUCT USED FOR UNKNOWN INDICATION
     Dosage: 2.5 mg daily
  7. NORVASC [Concomitant]
     Dosage: 5 mg daily
  8. ONGLYZA [Concomitant]
     Indication: DIABETES MELLITUS
     Dates: start: 2011
  9. B12 [Concomitant]
     Indication: ANAEMIA
     Dosage: Monthly
  10. LISINOPRIL [Concomitant]
     Indication: HYPERTENSION

REACTIONS (16)
  - Faecal vomiting [Recovered/Resolved]
  - Anaemia [Recovering/Resolving]
  - Abdominal pain [Recovered/Resolved]
  - Abdominal distension [Recovered/Resolved]
  - Intestinal obstruction [Recovered/Resolved]
  - Intestinal stenosis [Recovered/Resolved]
  - Injection site pain [Not Recovered/Not Resolved]
  - Rash generalised [Recovered/Resolved]
  - Oedema mouth [Recovered/Resolved]
  - Swollen tongue [Recovered/Resolved]
  - Pharyngeal oedema [Recovered/Resolved]
  - Injection site nodule [Recovered/Resolved]
  - Injection site nodule [Recovered/Resolved]
  - Abdominal distension [Recovered/Resolved]
  - Injection site haemorrhage [Unknown]
  - Wrong technique in drug usage process [Unknown]
